FAERS Safety Report 4479898-7 (Version None)
Quarter: 2004Q3

REPORT INFORMATION
  Report Type: 
  Country: None (occurrence: None)
  Receive Date: 20040923
  Receipt Date: 20040628
  Transmission Date: 20050211
  Serious: No
  Sender: FDA-Public Use
  Company Number: USA040669619

PATIENT
  Age: 81 Year
  Sex: Female
  Weight: 91 kg

DRUGS (7)
  1. FORTEO [Suspect]
     Indication: OSTEOPOROSIS
     Dosage: 20 UG DAY
     Dates: start: 20040301
  2. METHADONE HCL [Concomitant]
  3. ULTRACET [Concomitant]
  4. NEXIUM [Concomitant]
  5. SYNTHROID [Concomitant]
  6. BUMEX [Concomitant]
  7. K-DUR 10 [Concomitant]

REACTIONS (14)
  - ABDOMINAL PAIN UPPER [None]
  - ASTHENIA [None]
  - CHILLS [None]
  - CYSTITIS [None]
  - DIZZINESS [None]
  - DYSPNOEA [None]
  - FATIGUE [None]
  - FEELING ABNORMAL [None]
  - HOT FLUSH [None]
  - INSOMNIA [None]
  - NAUSEA [None]
  - PERIPHERAL COLDNESS [None]
  - STOMACH DISCOMFORT [None]
  - URINARY TRACT INFECTION [None]
